FAERS Safety Report 16395742 (Version 1)
Quarter: 2019Q2

REPORT INFORMATION
  Report Type: Spontaneous
  Country: AT (occurrence: AT)
  Receive Date: 20190605
  Receipt Date: 20190605
  Transmission Date: 20190711
  Serious: Yes (Hospitalization, Disabling, Other)
  Sender: FDA-Public Use
  Company Number: AT-ACELLA PHARMACEUTICALS, LLC-2067820

PATIENT
  Age: 70 Year
  Sex: Male
  Weight: 80 kg

DRUGS (6)
  1. TIAPRIDE [Concomitant]
     Active Substance: TIAPRIDE
  2. PHENYTOIN SODIUM. [Suspect]
     Active Substance: PHENYTOIN SODIUM
     Indication: SEIZURE
     Route: 042
  3. VALPROIC ACID. [Concomitant]
     Active Substance: VALPROIC ACID
  4. MIDAZOLAM [Concomitant]
     Active Substance: MIDAZOLAM HYDROCHLORIDE
  5. QUETIAPINE. [Concomitant]
     Active Substance: QUETIAPINE
  6. LEVETIRACETAM. [Concomitant]
     Active Substance: LEVETIRACETAM

REACTIONS (7)
  - Hyperkinesia [Recovered/Resolved]
  - Hyperreflexia [None]
  - Stereotypy [Recovered/Resolved]
  - Athetosis [Recovered/Resolved]
  - Chills [Recovered/Resolved]
  - Eyelid ptosis [Recovered/Resolved]
  - Choreoathetosis [Recovered/Resolved]
